FAERS Safety Report 12454340 (Version 1)
Quarter: 2016Q2

REPORT INFORMATION
  Report Type: Spontaneous
  Country: US (occurrence: US)
  Receive Date: 20160610
  Receipt Date: 20160610
  Transmission Date: 20160815
  Serious: Yes (Hospitalization, Other)
  Sender: FDA-Public Use
  Company Number: US-PFIZER INC-2016288952

PATIENT
  Age: 49 Year
  Sex: Male
  Weight: 65.77 kg

DRUGS (2)
  1. XANAX [Suspect]
     Active Substance: ALPRAZOLAM
     Indication: STRESS
     Dosage: 0.33 MG, UNK (ONE THIRD OF 1 MG)
  2. XANAX [Suspect]
     Active Substance: ALPRAZOLAM
     Dosage: 0.5 DF, UNK

REACTIONS (2)
  - Vertigo [Unknown]
  - Poisoning [Unknown]

NARRATIVE: CASE EVENT DATE: 2003
